FAERS Safety Report 8211627-3 (Version None)
Quarter: 2012Q1

REPORT INFORMATION
  Report Type: 
  Country: None (occurrence: None)
  Receive Date: 20120315
  Receipt Date: 20120312
  Transmission Date: 20120608
  Serious: No
  Sender: FDA-Public Use
  Company Number: US-TEVA-327743USA

PATIENT
  Sex: Female
  Weight: 68.1 kg

DRUGS (2)
  1. MOBIC [Concomitant]
     Indication: KNEE OPERATION
     Dates: start: 20120101
  2. PLAN B ONE-STEP [Suspect]
     Indication: POST COITAL CONTRACEPTION
     Dosage: 1.5 MILLIGRAM;
     Route: 048
     Dates: start: 20120306, end: 20120306

REACTIONS (3)
  - PELVIC PAIN [None]
  - DYSURIA [None]
  - MENSTRUATION DELAYED [None]
